FAERS Safety Report 8916517 (Version 1)
Quarter: 2012Q4

REPORT INFORMATION
  Report Type: 
  Country: US (occurrence: US)
  Receive Date: 20121120
  Receipt Date: 20121120
  Transmission Date: 20130627
  Serious: No
  Sender: FDA-Public Use
  Company Number: US-009507513-1211USA006285

PATIENT
  Sex: Male

DRUGS (4)
  1. PEGINTRON [Suspect]
     Indication: HEPATITIS C
     Dosage: UNK
     Dates: start: 20120525, end: 20120910
  2. PEGINTRON [Suspect]
     Dosage: UNK
     Dates: start: 20120910
  3. REBETOL [Suspect]
     Indication: HEPATITIS C
     Dosage: UNK
     Route: 048
     Dates: start: 20120525
  4. VICTRELIS [Suspect]
     Indication: HEPATITIS C
     Dosage: UNK
     Route: 048
     Dates: start: 20120623

REACTIONS (18)
  - White blood cell count decreased [Unknown]
  - Decreased immune responsiveness [Unknown]
  - Infection [Unknown]
  - Pain in extremity [Unknown]
  - Oedema peripheral [Unknown]
  - Swelling face [Unknown]
  - Eye swelling [Unknown]
  - Weight decreased [Unknown]
  - Oedema peripheral [Unknown]
  - Pain in extremity [Unknown]
  - Pain [Unknown]
  - Insomnia [Unknown]
  - Swelling face [Unknown]
  - Eye swelling [Unknown]
  - Dark circles under eyes [Unknown]
  - White blood cell count decreased [Unknown]
  - Rash macular [Unknown]
  - Rash pruritic [Unknown]
